FAERS Safety Report 7401166-1 (Version None)
Quarter: 2011Q2

REPORT INFORMATION
  Report Type: 
  Country: None (occurrence: None)
  Receive Date: 20110407
  Receipt Date: 20110325
  Transmission Date: 20111010
  Serious: Yes (Hospitalization)
  Sender: FDA-Public Use
  Company Number: PHHY2011US25125

PATIENT
  Sex: Male

DRUGS (2)
  1. GLEEVEC [Suspect]
     Dosage: 400 MG,DAILY
     Route: 048
     Dates: end: 20110316
  2. GLEEVEC [Suspect]
     Indication: CHRONIC MYELOID LEUKAEMIA
     Dosage: 600 MG, DAILY
     Route: 048
     Dates: start: 20110124

REACTIONS (8)
  - LIVER DISORDER [None]
  - HYPERHIDROSIS [None]
  - WHITE BLOOD CELL COUNT INCREASED [None]
  - RENAL DISORDER [None]
  - SOMNOLENCE [None]
  - MYOCARDIAL INFARCTION [None]
  - DYSPNOEA [None]
  - EATING DISORDER [None]
